FAERS Safety Report 19913483 (Version 1)
Quarter: 2021Q4

REPORT INFORMATION
  Report Type: Spontaneous
  Country: FR (occurrence: FR)
  Receive Date: 20211004
  Receipt Date: 20211004
  Transmission Date: 20220303
  Serious: Yes (Death)
  Sender: FDA-Public Use
  Company Number: None

PATIENT
  Age: 74 Year
  Sex: Female
  Weight: 58 kg

DRUGS (3)
  1. METHOTREXATE SODIUM [Suspect]
     Active Substance: METHOTREXATE SODIUM
     Indication: Central nervous system lymphoma
     Dosage: UNK, J1 J15/CYCLE
     Route: 042
     Dates: start: 20210305, end: 20210422
  2. VINCRISTINE [Suspect]
     Active Substance: VINCRISTINE
     Indication: Central nervous system lymphoma
     Dosage: 2 MILLIGRAM, J1 J15 / CYCLE
     Route: 042
     Dates: start: 20210305, end: 20210422
  3. RITUXIMAB [Suspect]
     Active Substance: RITUXIMAB
     Indication: Central nervous system lymphoma
     Dosage: 375 MILLIGRAM/SQ. METER, J1 / CYCLE
     Route: 042
     Dates: start: 20210305, end: 20210402

REACTIONS (2)
  - COVID-19 [Fatal]
  - Sepsis [Fatal]

NARRATIVE: CASE EVENT DATE: 20210426
